FAERS Safety Report 8773658 (Version 1)
Quarter: 2012Q4

REPORT INFORMATION
  Report Type: 
  Country: US (occurrence: US)
  Receive Date: 20120907
  Receipt Date: 20120907
  Transmission Date: 20130627
  Serious: No
  Sender: FDA-Public Use
  Company Number: US-BAYER-2012-091664

PATIENT

DRUGS (1)
  1. GADAVIST [Suspect]
     Dosage: UNK
     Dates: start: 201208, end: 201208

REACTIONS (1)
  - Urticaria [None]
